FAERS Safety Report 8252412-6 (Version None)
Quarter: 2012Q2

REPORT INFORMATION
  Report Type: 
  Country: None (occurrence: None)
  Receive Date: 20120402
  Receipt Date: 20110705
  Transmission Date: 20120825
  Serious: No
  Sender: FDA-Public Use
  Company Number: US-ABBOTT-11P-163-0837015-00

PATIENT
  Sex: Male

DRUGS (1)
  1. ANDROGEL [Suspect]
     Indication: BLOOD TESTOSTERONE DECREASED
     Dosage: APPLIES TO ABDOMEN DAILY.
     Route: 061
     Dates: start: 20090101

REACTIONS (4)
  - GENITAL RASH [None]
  - ERYTHEMA [None]
  - SKIN DISORDER [None]
  - GENITAL INFECTION FUNGAL [None]
